FAERS Safety Report 5072311-0 (Version None)
Quarter: 2006Q3

REPORT INFORMATION
  Report Type: 
  Country: None (occurrence: None)
  Receive Date: 20060711
  Receipt Date: 20060609
  Transmission Date: 20061208
  Serious: Yes (Other)
  Sender: FDA-Public Use
  Company Number: 2006S1000112

PATIENT
  Sex: Female

DRUGS (2)
  1. CUBICIN [Suspect]
     Indication: BACTERIAL INFECTION
     Dosage: 4 MG/KG
  2. CUBICIN [Suspect]
     Indication: SKIN INFECTION
     Dosage: 4 MG/KG

REACTIONS (1)
  - RHABDOMYOLYSIS [None]
